FAERS Safety Report 5824887-0 (Version None)
Quarter: 2008Q3

REPORT INFORMATION
  Report Type: 
  Country: None (occurrence: None)
  Receive Date: 20080728
  Receipt Date: 20080123
  Transmission Date: 20090109
  Serious: No
  Sender: FDA-Public Use
  Company Number: US-BOEHRINGER INGELHEIM GMBH, GERMANY-2007-BP-16656BP

PATIENT
  Sex: Male
  Weight: 136 kg

DRUGS (4)
  1. MIRAPEX [Suspect]
     Indication: PARKINSON'S DISEASE
     Dates: start: 20020101, end: 20061010
  2. PREVACID [Concomitant]
     Dates: end: 20050922
  3. VIAGRA [Concomitant]
     Indication: ERECTILE DYSFUNCTION
     Dates: end: 20050101
  4. SINEMET CR [Concomitant]
     Indication: PARKINSON'S DISEASE

REACTIONS (8)
  - ANXIETY [None]
  - DEPRESSION [None]
  - EMOTIONAL DISTRESS [None]
  - FEAR [None]
  - PAIN [None]
  - PATHOLOGICAL GAMBLING [None]
  - SOMNOLENCE [None]
  - STRESS [None]
